FAERS Safety Report 4804935-7 (Version None)
Quarter: 2005Q4

REPORT INFORMATION
  Report Type: 
  Country: None (occurrence: None)
  Receive Date: 20051017
  Receipt Date: 20051003
  Transmission Date: 20060501
  Serious: Yes (Death)
  Sender: FDA-Public Use
  Company Number: B0395810A

PATIENT
  Age: 39 Year
  Sex: 0

DRUGS (3)
  1. WELLBUTRIN [Suspect]
     Dosage: ORAL
     Route: 048
  2. CITALOPRAM (CITALOPRAM) [Suspect]
  3. TOPIRAMATE [Suspect]

REACTIONS (1)
  - COMPLETED SUICIDE [None]
